FAERS Safety Report 4668410-5 (Version None)
Quarter: 2005Q2

REPORT INFORMATION
  Report Type: 
  Country: None (occurrence: None)
  Receive Date: 20050523
  Receipt Date: 20050512
  Transmission Date: 20051028
  Serious: Yes (Hospitalization, Other)
  Sender: FDA-Public Use
  Company Number: US-JNJFOC-20050503092

PATIENT
  Age: 68 Year
  Sex: Female

DRUGS (3)
  1. RETEPLASE [Suspect]
     Route: 042
  2. HEPARIN [Concomitant]
  3. ASPIRIN [Concomitant]

REACTIONS (8)
  - DIALYSIS [None]
  - EOSINOPHILIA [None]
  - FAT EMBOLISM [None]
  - FLUID OVERLOAD [None]
  - GASTRIC ULCER [None]
  - HYPOTENSION [None]
  - RENAL ATROPHY [None]
  - RENAL FAILURE ACUTE [None]
